FAERS Safety Report 11552438 (Version 2)
Quarter: 2015Q4

REPORT INFORMATION
  Report Type: Spontaneous
  Country: CN (occurrence: CN)
  Receive Date: 20150925
  Receipt Date: 20151019
  Transmission Date: 20160304
  Serious: Yes (Hospitalization)
  Sender: FDA-Public Use
  Company Number: CN-JNJFOC-20150915505

PATIENT
  Age: 38 Year
  Sex: Female

DRUGS (2)
  1. RISPERDAL [Suspect]
     Active Substance: RISPERIDONE
     Indication: SCHIZOPHRENIA, PARANOID TYPE
     Dosage: 2 MG IN THE MORNING AND 2.5 MG IN THE EVENING.
     Route: 048
     Dates: start: 20140220, end: 20140318
  2. BENZHEXOL [Concomitant]
     Active Substance: TRIHEXYPHENIDYL
     Indication: ADVERSE REACTION
     Route: 048

REACTIONS (5)
  - Cardiac disorder [Recovered/Resolved]
  - Extrapyramidal disorder [Recovered/Resolved]
  - Tachypnoea [Recovered/Resolved]
  - Productive cough [Recovered/Resolved]
  - Salivary hypersecretion [Recovered/Resolved]

NARRATIVE: CASE EVENT DATE: 20140318
